FAERS Safety Report 24134096 (Version 2)
Quarter: 2024Q3

REPORT INFORMATION
  Report Type: Report from Study
  Country: CA (occurrence: CA)
  Receive Date: 20240724
  Receipt Date: 20240919
  Transmission Date: 20241017
  Serious: Yes (Hospitalization, Other)
  Sender: JOHNSON AND JOHNSON
  Company Number: CA-JNJFOC-20240419279

PATIENT
  Age: 50 Year
  Sex: Female

DRUGS (11)
  1. REMICADE [Suspect]
     Active Substance: INFLIXIMAB
     Indication: Colitis ulcerative
     Dosage: AL-2026
     Route: 041
     Dates: start: 20240403
  2. REMICADE [Suspect]
     Active Substance: INFLIXIMAB
     Route: 041
     Dates: start: 20240403
  3. KEYTRUDA [Concomitant]
     Active Substance: PEMBROLIZUMAB
     Dosage: ON HOLD-LAST DOSE JAN 2024
  4. MINERALS\VITAMINS [Concomitant]
     Active Substance: MINERALS\VITAMINS
  5. PROPRANOLOL [Concomitant]
     Active Substance: PROPRANOLOL HYDROCHLORIDE
  6. AMITRIPTYLINE [Concomitant]
     Active Substance: AMITRIPTYLINE
  7. APIXABAN [Concomitant]
     Active Substance: APIXABAN
  8. LEVOTHYROXINE [Concomitant]
     Active Substance: LEVOTHYROXINE\LEVOTHYROXINE SODIUM
  9. PREDNISONE [Concomitant]
     Active Substance: PREDNISONE
     Dosage: TAPERING OFF 5MG PER WEEK
  10. IBUPROFEN [Concomitant]
     Active Substance: IBUPROFEN
     Dosage: PRN
  11. PANTOPRAZOLE [Concomitant]
     Active Substance: PANTOPRAZOLE

REACTIONS (16)
  - Chest pain [Unknown]
  - Dyspnoea [Unknown]
  - Pericardial effusion [Unknown]
  - Sepsis [Unknown]
  - Kidney infection [Unknown]
  - Pleural effusion [Unknown]
  - Spinal cord neoplasm [Not Recovered/Not Resolved]
  - Rash [Unknown]
  - Dermatitis contact [Recovering/Resolving]
  - Muscle spasms [Not Recovered/Not Resolved]
  - Pollakiuria [Unknown]
  - Muscle spasms [Unknown]
  - Tachycardia [Not Recovered/Not Resolved]
  - Intervertebral disc protrusion [Unknown]
  - Back pain [Not Recovered/Not Resolved]
  - Hypotension [Not Recovered/Not Resolved]

NARRATIVE: CASE EVENT DATE: 20240403
